FAERS Safety Report 5975006-1 (Version None)
Quarter: 2008Q4

REPORT INFORMATION
  Report Type: 
  Country: None (occurrence: None)
  Receive Date: 20081202
  Receipt Date: 20081201
  Transmission Date: 20090506
  Serious: Yes (Death)
  Sender: FDA-Public Use
  Company Number: JP-JNJFOC-20081200208

PATIENT
  Age: 72 Year
  Sex: Male

DRUGS (2)
  1. ITRIZOLE [Suspect]
     Route: 042
  2. ITRIZOLE [Suspect]
     Indication: CANDIDIASIS
     Route: 042

REACTIONS (3)
  - HEPATIC FAILURE [None]
  - PULMONARY OEDEMA [None]
  - RENAL FAILURE [None]
